FAERS Safety Report 11075998 (Version 1)
Quarter: 2015Q2

REPORT INFORMATION
  Report Type: Spontaneous
  Country: US (occurrence: US)
  Receive Date: 20150429
  Receipt Date: 20150429
  Transmission Date: 20150821
  Serious: No
  Sender: FDA-Public Use
  Company Number: US-MYLANLABS-2014S1006508

PATIENT
  Sex: Female

DRUGS (16)
  1. LIDODERM [Concomitant]
     Active Substance: LIDOCAINE
     Dosage: 5 %,UNK
     Route: 062
  2. ASPIRIN. [Concomitant]
     Active Substance: ASPIRIN
     Dosage: 81 MG,UNK
  3. ANTIFUNGALS FOR TOPICAL USE [Concomitant]
     Indication: NAIL INFECTION
     Dosage: UNK
  4. CLARITIN [Concomitant]
     Active Substance: LORATADINE
     Dosage: 10 MG,QD
  5. ALBUTEROL. [Concomitant]
     Active Substance: ALBUTEROL
     Dosage: UNK
     Route: 055
  6. MELOXICAM. [Concomitant]
     Active Substance: MELOXICAM
     Indication: ARTHRITIS
     Dosage: 7.5 MG,QD
  7. ST JOHN^S WORT [Concomitant]
     Active Substance: ST. JOHN^S WORT
     Dosage: 300 MG,QD
  8. NORCO [Concomitant]
     Active Substance: ACETAMINOPHEN\HYDROCODONE BITARTRATE
     Dosage: UNK
  9. CARISOPRODOL. [Concomitant]
     Active Substance: CARISOPRODOL
     Dosage: UNK
  10. VENTOLIN HFA [Concomitant]
     Active Substance: ALBUTEROL SULFATE
     Dosage: UNK UNK,PRN
  11. HYOSCYAMINE [Concomitant]
     Active Substance: HYOSCYAMINE
     Dosage: .125 ?G,PRN
  12. ALLERGY SHOTS [Concomitant]
     Active Substance: UNSPECIFIED INGREDIENT
     Dosage: UNK UNK,Q3W
  13. DOXYCYCLINE. [Suspect]
     Active Substance: DOXYCYCLINE
     Dosage: UNK
  14. RHINOCORT [Concomitant]
     Active Substance: BUDESONIDE
     Dosage: 32 ?G,PRN
     Route: 045
  15. ANTIFUNGALS [Concomitant]
     Active Substance: UNSPECIFIED INGREDIENT
     Indication: LOCALISED INFECTION
     Dosage: UNK
     Route: 061
  16. LAXATIVE [Concomitant]
     Active Substance: UNSPECIFIED INGREDIENT
     Dosage: UNK

REACTIONS (4)
  - Joint swelling [Recovered/Resolved]
  - Vision blurred [Recovered/Resolved]
  - Peripheral swelling [Recovered/Resolved]
  - Diarrhoea [Recovered/Resolved]
